FAERS Safety Report 13602767 (Version 2)
Quarter: 2017Q3

REPORT INFORMATION
  Report Type: Report from Study
  Country: KR (occurrence: KR)
  Receive Date: 20170601
  Receipt Date: 20170714
  Transmission Date: 20171127
  Serious: Yes (Other)
  Sender: FDA-Public Use
  Company Number: KR-JNJFOC-20170525781

PATIENT

DRUGS (2)
  1. INFLIXIMAB [Suspect]
     Active Substance: INFLIXIMAB
     Indication: RHEUMATOID ARTHRITIS
     Route: 065
  2. INFLIXIMAB, RECOMBINANT [Suspect]
     Active Substance: INFLIXIMAB
     Indication: RHEUMATOID ARTHRITIS
     Route: 042

REACTIONS (16)
  - Musculoskeletal disorder [Unknown]
  - Enteritis [Unknown]
  - Cardiac disorder [Unknown]
  - Alopecia [Unknown]
  - Urinary tract disorder [Unknown]
  - Upper respiratory tract infection [Unknown]
  - Gingivitis [Unknown]
  - Injury [Unknown]
  - Urticaria [Unknown]
  - Pneumonia [Unknown]
  - Renal disorder [Unknown]
  - Swollen joint count [Unknown]
  - Tender joint count [Unknown]
  - Infusion related reaction [Unknown]
  - Rash [Unknown]
  - Drug ineffective [Unknown]
